FAERS Safety Report 24640365 (Version 1)
Quarter: 2024Q4

REPORT INFORMATION
  Report Type: Spontaneous
  Country: US (occurrence: US)
  Receive Date: 20241120
  Receipt Date: 20241120
  Transmission Date: 20250115
  Serious: No
  Sender: RANBAXY
  Company Number: US-SUN PHARMACEUTICAL INDUSTRIES LTD-2024R1-475738

PATIENT
  Age: 41 Year
  Sex: Female

DRUGS (2)
  1. DEURUXOLITINIB [Suspect]
     Active Substance: DEURUXOLITINIB
     Indication: Alopecia areata
     Dosage: 12 MILLIGRAM
     Route: 065
  2. DEURUXOLITINIB [Suspect]
     Active Substance: DEURUXOLITINIB
     Dosage: 8 MILLIGRAM
     Route: 065

REACTIONS (4)
  - Alopecia [Unknown]
  - Acne [Unknown]
  - Blood cholesterol increased [Unknown]
  - Weight increased [Unknown]
